FAERS Safety Report 15964278 (Version 4)
Quarter: 2019Q1

REPORT INFORMATION
  Report Type: Report from Study
  Country: US (occurrence: US)
  Receive Date: 20190214
  Receipt Date: 20190301
  Transmission Date: 20190417
  Serious: Yes (Hospitalization)
  Sender: FDA-Public Use
  Company Number: US-ROCHE-2218634

PATIENT
  Age: 47 Year
  Sex: Male
  Weight: 98 kg

DRUGS (6)
  1. CLOBETASOL [Concomitant]
     Active Substance: CLOBETASOL
     Indication: ECZEMA
  2. OCRELIZUMAB. [Suspect]
     Active Substance: OCRELIZUMAB
     Indication: RELAPSING MULTIPLE SCLEROSIS
     Dosage: TWO 300-MG IV INFUSION ON DAYS 1 AND 15 THEN AS SINGLE INFUSION OF 600 MG EVERY 24 WEEKS?MOST RECENT
     Route: 042
     Dates: start: 20170119
  3. FLOVENT [Concomitant]
     Active Substance: FLUTICASONE PROPIONATE
     Dosage: 2 PUFFS
     Route: 065
     Dates: start: 20171229
  4. OCRELIZUMAB. [Suspect]
     Active Substance: OCRELIZUMAB
     Dosage: MOST RECENT DOSE ON 05/DEC/2018 PRIOR TO SAE
     Route: 042
  5. CLOBETASOL [Concomitant]
     Active Substance: CLOBETASOL
     Indication: DERMATITIS ATOPIC
     Dosage: 1 APPLICATION TOPICAL ON WORST AREAS OF ECZEMA
     Route: 065
     Dates: start: 20181107
  6. ALBUTEROL. [Concomitant]
     Active Substance: ALBUTEROL
     Dosage: 2 PUFF
     Route: 065
     Dates: start: 1985

REACTIONS (1)
  - Cellulitis [Recovering/Resolving]

NARRATIVE: CASE EVENT DATE: 20181113
